FAERS Safety Report 7353967-6 (Version None)
Quarter: 2011Q1

REPORT INFORMATION
  Report Type: 
  Country: None (occurrence: None)
  Receive Date: 20110315
  Receipt Date: 20110301
  Transmission Date: 20110831
  Serious: Yes (Other)
  Sender: FDA-Public Use
  Company Number: PHHY2011AT17232

PATIENT
  Sex: Male

DRUGS (1)
  1. FLUCONAZOLE [Suspect]
     Indication: FUNGAL INFECTION
     Dosage: 150 MG, UNK
     Route: 048
     Dates: start: 20101101

REACTIONS (14)
  - MALAISE [None]
  - PARANOIA [None]
  - TACHYCARDIA [None]
  - HALLUCINATION [None]
  - HEADACHE [None]
  - MYALGIA [None]
  - DEHYDRATION [None]
  - FATIGUE [None]
  - PARAESTHESIA [None]
  - FACE OEDEMA [None]
  - ANGIOEDEMA [None]
  - URTICARIA [None]
  - PRURITUS [None]
  - ENOPHTHALMOS [None]
